FAERS Safety Report 9864239 (Version 2)
Quarter: 2014Q1

REPORT INFORMATION
  Report Type: Spontaneous
  Country: US (occurrence: US)
  Receive Date: 20140203
  Receipt Date: 20140307
  Transmission Date: 20141002
  Serious: Yes (Other)
  Sender: FDA-Public Use
  Company Number: US-AMGEN-USASP2014000463

PATIENT
  Age: 37 Year
  Sex: Female
  Weight: 113.38 kg

DRUGS (6)
  1. ENBREL [Suspect]
     Indication: RHEUMATOID ARTHRITIS
     Dosage: 50 MG, QWK
     Route: 058
     Dates: start: 201208, end: 20131201
  2. METHOTREXATE                       /00113802/ [Concomitant]
     Indication: RHEUMATOID ARTHRITIS
     Dosage: 7.5 MG, THREE TABLETS QWK
     Route: 048
     Dates: start: 201304
  3. METHOTREXATE                       /00113802/ [Concomitant]
     Dosage: 2.5 MG, THREE TABLETS QWK
     Route: 048
  4. FOLIC ACID [Concomitant]
     Dosage: 2 MG, QD
     Route: 048
  5. SERTRALINE HCL [Concomitant]
     Dosage: 7.5 MG, QD
     Route: 048
  6. SERTRALINE HCL [Concomitant]
     Dosage: 150 MG, EVERY DAY
     Route: 048

REACTIONS (4)
  - Multiple sclerosis [Not Recovered/Not Resolved]
  - Vision blurred [Unknown]
  - Fatigue [Unknown]
  - Arthropathy [Unknown]
